FAERS Safety Report 4828900-9 (Version None)
Quarter: 2005Q4

REPORT INFORMATION
  Report Type: 
  Country: None (occurrence: None)
  Receive Date: 20051014
  Receipt Date: 20050711
  Transmission Date: 20060501
  Serious: No
  Sender: FDA-Public Use
  Company Number: 2005SP001828

PATIENT
  Age: 81 Year
  Sex: Female

DRUGS (6)
  1. LUNESTA [Suspect]
     Indication: INSOMNIA
     Dosage: 2 MG;1X;ORAL
     Route: 048
     Dates: start: 20050519, end: 20050519
  2. LUNESTA [Suspect]
     Indication: INSOMNIA
     Dosage: 2 MG;1X;ORAL
     Route: 048
     Dates: start: 20050601, end: 20050601
  3. ATORVASTATIN CALCIUM [Concomitant]
  4. FOSAMAX [Concomitant]
  5. ACIPHEX [Concomitant]
  6. LORTAB [Concomitant]

REACTIONS (1)
  - PARADOXICAL DRUG REACTION [None]
